FAERS Safety Report 5392446-2 (Version None)
Quarter: 2007Q3

REPORT INFORMATION
  Report Type: 
  Country: None (occurrence: None)
  Receive Date: 20070720
  Receipt Date: 20070710
  Transmission Date: 20080115
  Serious: Yes (Hospitalization, Other)
  Sender: FDA-Public Use
  Company Number: PHHO2007AR11713

PATIENT
  Age: 82 Year
  Sex: Female

DRUGS (4)
  1. DIOVAN [Suspect]
     Indication: HYPERTENSION
     Dosage: 80 MG, QD
     Route: 048
  2. DIOVAN [Suspect]
     Dosage: 80 MG, QD
     Route: 048
  3. DIOVAN [Suspect]
     Dosage: NO TREATMENT
  4. DIOVAN AMLO [Suspect]
     Indication: HYPERTENSION

REACTIONS (7)
  - DIARRHOEA [None]
  - FALL [None]
  - HIP FRACTURE [None]
  - HIP SURGERY [None]
  - JOINT DISLOCATION [None]
  - JOINT DISLOCATION REDUCTION [None]
  - PULMONARY OEDEMA [None]
